FAERS Safety Report 5864110-4 (Version None)
Quarter: 2008Q3

REPORT INFORMATION
  Report Type: 
  Country: None (occurrence: None)
  Receive Date: 20080829
  Receipt Date: 20080827
  Transmission Date: 20090109
  Serious: Yes (Life-Threatening)
  Sender: FDA-Public Use
  Company Number: JP-JNJFOC-20080806420

PATIENT
  Age: 58 Year
  Sex: Male

DRUGS (1)
  1. FINIBAX [Suspect]
     Indication: BILIARY TRACT INFECTION
     Route: 041

REACTIONS (2)
  - BLOOD PRESSURE DECREASED [None]
  - SHOCK [None]
